FAERS Safety Report 5130750-3 (Version None)
Quarter: 2006Q4

REPORT INFORMATION
  Report Type: 
  Country: None (occurrence: None)
  Receive Date: 20061017
  Receipt Date: 20061017
  Transmission Date: 20070319
  Serious: Yes (Hospitalization)
  Sender: FDA-Public Use
  Company Number: None

PATIENT
  Sex: Male
  Weight: 84 kg

DRUGS (3)
  1. TYGACIL [Suspect]
     Indication: CULTURE WOUND POSITIVE
     Dosage: 50MG Q12HR IV
     Route: 042
     Dates: start: 20060423, end: 20061010
  2. TYGACIL [Suspect]
     Indication: ENTEROCOCCAL INFECTION
     Dosage: 50MG Q12HR IV
     Route: 042
     Dates: start: 20060423, end: 20061010
  3. TYGACIL [Suspect]
     Indication: STENOTROPHOMONAS INFECTION
     Dosage: 50MG Q12HR IV
     Route: 042
     Dates: start: 20060423, end: 20061010

REACTIONS (3)
  - CONFUSIONAL STATE [None]
  - DELIRIUM [None]
  - MENTAL STATUS CHANGES [None]
